FAERS Safety Report 8453615-8 (Version None)
Quarter: 2012Q2

REPORT INFORMATION
  Report Type: 
  Country: None (occurrence: None)
  Receive Date: 20120620
  Receipt Date: 20120613
  Transmission Date: 20120825
  Serious: Yes (Death)
  Sender: FDA-Public Use
  Company Number: US-MERCK-1205USA02867

PATIENT
  Age: 51 Year
  Sex: Male
  Weight: 50 kg

DRUGS (4)
  1. DOCUSATE SODIUM AND SENNOSIDES [Concomitant]
     Route: 065
  2. ZOLINZA [Suspect]
     Indication: METASTASES TO CENTRAL NERVOUS SYSTEM
     Route: 048
     Dates: start: 20110616, end: 20110627
  3. ACETAMINOPHEN AND HYDROCODONE BITARTRATE [Concomitant]
     Route: 065
  4. ALPRAZOLAM [Concomitant]
     Route: 065

REACTIONS (1)
  - DEATH [None]
